FAERS Safety Report 21133737 (Version 1)
Quarter: 2022Q3

REPORT INFORMATION
  Report Type: Spontaneous
  Country: US (occurrence: None)
  Receive Date: 20220726
  Receipt Date: 20220726
  Transmission Date: 20221027
  Serious: No
  Sender: FDA-Public Use
  Company Number: None

PATIENT
  Sex: Female

DRUGS (1)
  1. QWO [Suspect]
     Active Substance: COLLAGENASE CLOSTRIDIUM HISTOLYTICUM-AAES
     Indication: Skin cosmetic procedure
     Dosage: OTHER QUANTITY : 24 INJECTION(S);?OTHER FREQUENCY : 2 INJ 3 WK APART;?
     Route: 058
     Dates: start: 20211223, end: 20220120

REACTIONS (1)
  - Injection site discolouration [None]
